FAERS Safety Report 6161478-9 (Version None)
Quarter: 2009Q2

REPORT INFORMATION
  Report Type: 
  Country: None (occurrence: None)
  Receive Date: 20090421
  Receipt Date: 20090415
  Transmission Date: 20091009
  Serious: Yes (Death)
  Sender: FDA-Public Use
  Company Number: US-ROXANE LABORATORIES, INC.-2009-RO-00386RO

PATIENT
  Sex: Male

DRUGS (8)
  1. LIDOCAINE [Suspect]
  2. CODEINE [Suspect]
  3. ALPRAZOLAM [Suspect]
  4. XYLAZINE [Suspect]
  5. FENTANYL [Suspect]
  6. 6-ACETYLMORPHINE [Suspect]
  7. DIPHENHYDRAMINE HCL [Suspect]
  8. HEROIN [Concomitant]

REACTIONS (1)
  - ADVERSE DRUG REACTION [None]
